FAERS Safety Report 25011779 (Version 1)
Quarter: 2025Q1

REPORT INFORMATION
  Report Type: Report from Study
  Country: US (occurrence: US)
  Receive Date: 20250226
  Receipt Date: 20250226
  Transmission Date: 20250409
  Serious: Yes (Hospitalization)
  Sender: BOEHRINGER INGELHEIM
  Company Number: US-BoehringerIngelheim-2024-BI-070576

PATIENT
  Age: 79 Year
  Sex: Female

DRUGS (2)
  1. OFEV [Suspect]
     Active Substance: NINTEDANIB
     Indication: Interstitial lung disease
     Dates: start: 202411
  2. OFEV [Suspect]
     Active Substance: NINTEDANIB
     Indication: Pulmonary fibrosis

REACTIONS (16)
  - Fall [Not Recovered/Not Resolved]
  - Bone contusion [Unknown]
  - Dehydration [Unknown]
  - Hepatic enzyme increased [Unknown]
  - Foot fracture [Unknown]
  - Productive cough [Unknown]
  - Dyspnoea [Unknown]
  - Wheezing [Unknown]
  - Ankle fracture [Unknown]
  - Dizziness [Recovered/Resolved]
  - Hepatic enzyme decreased [Not Recovered/Not Resolved]
  - Blood sodium decreased [Not Recovered/Not Resolved]
  - Diarrhoea [Not Recovered/Not Resolved]
  - Contusion [Not Recovered/Not Resolved]
  - Body temperature decreased [Not Recovered/Not Resolved]
  - Adverse drug reaction [Unknown]

NARRATIVE: CASE EVENT DATE: 20250205
